FAERS Safety Report 15284964 (Version 1)
Quarter: 2018Q3

REPORT INFORMATION
  Report Type: Spontaneous
  Country: US (occurrence: US)
  Receive Date: 20180816
  Receipt Date: 20180816
  Transmission Date: 20181010
  Serious: Yes (Other)
  Sender: FDA-Public Use
  Company Number: US-PFIZER INC-2018329141

PATIENT
  Age: 14 Year
  Sex: Female
  Weight: 59 kg

DRUGS (2)
  1. CABERGOLINE. [Suspect]
     Active Substance: CABERGOLINE
     Dosage: 0.5 MG, 2X/WEEK
     Route: 048
     Dates: start: 2018
  2. CABERGOLINE. [Suspect]
     Active Substance: CABERGOLINE
     Indication: BLOOD PROLACTIN
     Dosage: 1 MG, 2X/WEEK
     Route: 048
     Dates: start: 2018, end: 2018

REACTIONS (5)
  - Headache [Unknown]
  - Dizziness [Unknown]
  - Intentional product misuse [Unknown]
  - Product use issue [Unknown]
  - Condition aggravated [Unknown]

NARRATIVE: CASE EVENT DATE: 2018
